FAERS Safety Report 9851309 (Version 5)
Quarter: 2014Q2

REPORT INFORMATION
  Report Type: Spontaneous
  Country: JP (occurrence: JP)
  Receive Date: 20140129
  Receipt Date: 20140401
  Transmission Date: 20141212
  Serious: Yes (Death)
  Sender: FDA-Public Use
  Company Number: JP-PFIZER INC-2014023322

PATIENT
  Age: 87 Year
  Sex: Female

DRUGS (9)
  1. LIPITOR [Suspect]
     Indication: HYPERCHOLESTEROLAEMIA
     Dosage: 5 MG, 1X/DAY
     Route: 048
     Dates: start: 20131212, end: 20131219
  2. PARIET [Concomitant]
     Dosage: UNK
  3. BIO-THREE [Concomitant]
     Dosage: UNK
     Route: 048
  4. GASMOTIN [Concomitant]
     Dosage: UNK
     Route: 048
  5. OPALMON [Concomitant]
     Dosage: UNK
  6. AMLODIPINE [Concomitant]
     Dosage: UNK
     Route: 048
  7. DEPAS [Concomitant]
     Dosage: UNK
     Route: 048
  8. BAYASPIRIN [Concomitant]
     Dosage: UNK
  9. LIVALO [Concomitant]
     Indication: HYPERCHOLESTEROLAEMIA
     Dosage: UNK
     Dates: end: 20131211

REACTIONS (2)
  - Blood creatinine increased [Fatal]
  - Protein urine present [Fatal]
